FAERS Safety Report 7320793-3 (Version None)
Quarter: 2011Q1

REPORT INFORMATION
  Report Type: 
  Country: None (occurrence: None)
  Receive Date: 20110228
  Receipt Date: 20110215
  Transmission Date: 20110831
  Serious: Yes (Other)
  Sender: FDA-Public Use
  Company Number: US-ROCHE-755573

PATIENT
  Sex: Female
  Weight: 49.9 kg

DRUGS (5)
  1. SKELAXIN [Concomitant]
  2. VALTREX [Concomitant]
  3. RETIN-A [Concomitant]
  4. ACCUTANE [Suspect]
     Route: 065
     Dates: start: 20000427, end: 20000823
  5. DIFLUCAN [Concomitant]

REACTIONS (6)
  - COLITIS ULCERATIVE [None]
  - MULTI-ORGAN FAILURE [None]
  - SUICIDAL IDEATION [None]
  - PANCREATITIS [None]
  - DEPRESSION [None]
  - ORAL HERPES [None]
